FAERS Safety Report 18815471 (Version 1)
Quarter: 2021Q1

REPORT INFORMATION
  Report Type: Spontaneous
  Country: US (occurrence: US)
  Receive Date: 20210129
  Receipt Date: 20210129
  Transmission Date: 20210419
  Serious: Yes (Other)
  Sender: FDA-Public Use
  Company Number: None

PATIENT
  Age: 35 Year
  Sex: Female
  Weight: 65.25 kg

DRUGS (8)
  1. MULTIVITAMIN [Concomitant]
     Active Substance: VITAMINS
  2. VITAMIN D [Concomitant]
     Active Substance: VITAMIN D NOS
  3. CALCIUM MAGNESIUM SUPPLEMENT [Concomitant]
     Active Substance: CALCIUM\MAGNESIUM
  4. ASHWAGANDA SUPPLEMENT [Concomitant]
  5. FISH OIL [Concomitant]
     Active Substance: FISH OIL
  6. NIACINAMIDE 4%, TRETINOIN 0.01%, AZELAIC ACID 2% [Suspect]
     Active Substance: AZELAIC ACID\NIACINAMIDE\TRETINOIN
     Indication: ACNE
     Dosage: ?          QUANTITY:24 ML;?
     Route: 061
  7. VITAMIN B COMPLEX [Concomitant]
     Active Substance: CYANOCOBALAMIN\DEXPANTHENOL\NIACINAMIDE\PYRIDOXINE HYDROCHLORIDE\RIBOFLAVIN 5^-PHOSPHATE SODIUM\THIAMINE HYDROCHLORIDE\VITAMIN B COMPLEX
  8. KYLEENA [Concomitant]
     Active Substance: LEVONORGESTREL

REACTIONS (3)
  - Device dispensing error [None]
  - Product communication issue [None]
  - Product packaging quantity issue [None]

NARRATIVE: CASE EVENT DATE: 20210129
